FAERS Safety Report 4952849-4 (Version None)
Quarter: 2006Q1

REPORT INFORMATION
  Report Type: 
  Country: None (occurrence: None)
  Receive Date: 20060324
  Receipt Date: 20060313
  Transmission Date: 20060701
  Serious: Yes (Disabling)
  Sender: FDA-Public Use
  Company Number: EMADSS2002005839

PATIENT
  Sex: Female
  Weight: 65 kg

DRUGS (3)
  1. RISPERIDONE [Suspect]
     Route: 048
     Dates: start: 20000713, end: 20020121
  2. AMITRIPTYLINE HCL [Concomitant]
     Indication: DEPRESSION
     Route: 065
  3. ZOPICLONE [Concomitant]
     Indication: INSOMNIA
     Route: 065

REACTIONS (5)
  - DYSKINESIA [None]
  - DYSPHONIA [None]
  - DYSTONIA [None]
  - MUSCLE SPASMS [None]
  - TORTICOLLIS [None]
